FAERS Safety Report 16762661 (Version 2)
Quarter: 2019Q4

REPORT INFORMATION
  Report Type: Spontaneous
  Country: DE (occurrence: DE)
  Receive Date: 20190831
  Receipt Date: 20191224
  Transmission Date: 20200122
  Serious: Yes (Hospitalization, Other)
  Sender: FDA-Public Use
  Company Number: PHNU2003DE03234

PATIENT
  Age: 67 Year
  Sex: Female
  Weight: 80 kg

DRUGS (41)
  1. REMIFENTANIL [Suspect]
     Active Substance: REMIFENTANIL
     Indication: PRODUCT USED FOR UNKNOWN INDICATION
     Dosage: 0.45 G, QD
     Route: 042
     Dates: start: 20010904, end: 20010904
  2. CISATRACURIUM BESILATE [Suspect]
     Active Substance: CISATRACURIUM BESYLATE
     Indication: STUPOR
     Dosage: UNK
     Route: 042
     Dates: start: 20010910, end: 20010910
  3. RYTMONORM [Suspect]
     Active Substance: PROPAFENONE
     Dosage: 150 MG, BID
     Route: 048
     Dates: start: 20010904
  4. BEPANTHEN [DEXPANTHENOL] [Suspect]
     Active Substance: DEXPANTHENOL
     Indication: PRODUCT USED FOR UNKNOWN INDICATION
     Dosage: 2 DF, QD
     Route: 042
     Dates: start: 20010911
  5. RANITIC [Suspect]
     Active Substance: RANITIDINE HYDROCHLORIDE
     Indication: PRODUCT USED FOR UNKNOWN INDICATION
     Dosage: 100 ML, QD
     Route: 042
     Dates: start: 20010910, end: 20010910
  6. CISATRACURIUM BESYLATE. [Suspect]
     Active Substance: CISATRACURIUM BESYLATE
     Indication: PRODUCT USED FOR UNKNOWN INDICATION
     Dosage: UNK, 1D
     Route: 042
     Dates: start: 20010910, end: 20010910
  7. ATROPINE. [Suspect]
     Active Substance: ATROPINE
     Indication: PRODUCT USED FOR UNKNOWN INDICATION
     Dosage: 0.25 MG, QD
     Route: 042
     Dates: start: 20010904, end: 20010904
  8. DIGITOXIN [Suspect]
     Active Substance: DIGITOXIN
     Dosage: 0.07 MG, QD
     Route: 048
     Dates: start: 20010904
  9. RYTMONORM [Suspect]
     Active Substance: PROPAFENONE
     Indication: ARRHYTHMIA
     Dosage: UNK UNK, IRD
     Route: 048
     Dates: end: 20010903
  10. PROPOFOL. [Suspect]
     Active Substance: PROPOFOL
     Indication: STUPOR
     Dosage: UNK
     Route: 042
     Dates: start: 20010910, end: 20010910
  11. FENISTIL [Suspect]
     Active Substance: DIMETHINDENE
     Indication: PREMEDICATION
     Dosage: 8 ML, QD
     Route: 042
     Dates: start: 20010910, end: 20010910
  12. SUPRATONIN [Suspect]
     Active Substance: AMEZINIUM METILSULFATE
     Dosage: 2.5 MG, SINGLE
     Route: 042
     Dates: start: 20010910, end: 20010910
  13. NORMABRAIN [Suspect]
     Active Substance: PIRACETAM
     Dosage: 1 DF, BID
     Route: 048
     Dates: start: 20010904
  14. RANITIC [Suspect]
     Active Substance: RANITIDINE HYDROCHLORIDE
     Dosage: 100 ML, SINGLE
     Route: 042
     Dates: start: 20010910, end: 20010910
  15. ISICOM ^DESITIN^ [Suspect]
     Active Substance: CARBIDOPA\LEVODOPA
     Dosage: 50 MG, TID
     Route: 048
     Dates: start: 20010904, end: 20010909
  16. THIOPENTAL [Suspect]
     Active Substance: THIOPENTAL
     Indication: PRODUCT USED FOR UNKNOWN INDICATION
     Dosage: 250 ML, QD
     Route: 042
     Dates: start: 20010904, end: 20010904
  17. NEOSTIGMINE. [Suspect]
     Active Substance: NEOSTIGMINE METHYLSULFATE
     Indication: PRODUCT USED FOR UNKNOWN INDICATION
     Dosage: 2 DF, QD
     Route: 042
  18. CALCIUM BETA [Concomitant]
     Indication: BLOOD CALCIUM DECREASED
     Dosage: UNK, IRD
     Route: 048
  19. DIGITOXIN [Suspect]
     Active Substance: DIGITOXIN
     Indication: PRODUCT USED FOR UNKNOWN INDICATION
     Dosage: UNK
     Route: 048
     Dates: end: 20010903
  20. NOVALGIN (METAMIZOLE SODIUM) [Suspect]
     Active Substance: METAMIZOLE SODIUM
     Indication: PRODUCT USED FOR UNKNOWN INDICATION
     Dosage: 0.25 G, QD
     Route: 042
     Dates: start: 20010904, end: 20010904
  21. KETAMINE [Suspect]
     Active Substance: KETAMINE
     Indication: PRODUCT USED FOR UNKNOWN INDICATION
     Dosage: UNK
     Route: 042
     Dates: start: 20010910, end: 20010910
  22. DIMETINDENE MALEATE [Suspect]
     Active Substance: DIMETHINDENE MALEATE
     Indication: PREMEDICATION
     Dosage: 8 ML, ONCE/SINGLE
     Route: 042
     Dates: start: 20010910, end: 20010910
  23. RINGERS SOLUTION [Concomitant]
     Active Substance: CALCIUM CHLORIDE\POTASSIUM CHLORIDE\SODIUM CHLORIDE
     Indication: PRODUCT USED FOR UNKNOWN INDICATION
     Dosage: UNK
     Route: 042
     Dates: start: 20010904, end: 20010904
  24. JONOSTERIL [Concomitant]
     Indication: PRODUCT USED FOR UNKNOWN INDICATION
     Dosage: 2500 ML, QD
     Route: 042
     Dates: start: 20010910
  25. MONO-EMBOLEX [Suspect]
     Active Substance: CERTOPARIN SODIUM
     Indication: THROMBOSIS PROPHYLAXIS
     Dosage: 0.5 ML, QD
     Route: 058
     Dates: start: 20010910, end: 20010910
  26. MIDAZOLAM [Suspect]
     Active Substance: MIDAZOLAM HYDROCHLORIDE
     Indication: PRODUCT USED FOR UNKNOWN INDICATION
     Route: 042
     Dates: start: 20010910, end: 20010910
  27. FENTANYL. [Suspect]
     Active Substance: FENTANYL
     Indication: STUPOR
     Dosage: UNK, QD
     Route: 042
     Dates: start: 20010910, end: 20010910
  28. NAVOBAN [Suspect]
     Active Substance: TROPISETRON HYDROCHLORIDE
     Indication: PROPHYLAXIS OF NAUSEA AND VOMITING
     Dosage: 2 MG, QD
     Route: 042
     Dates: start: 20010910, end: 20010910
  29. NAROPIN [Suspect]
     Active Substance: ROPIVACAINE HYDROCHLORIDE
     Indication: PRODUCT USED FOR UNKNOWN INDICATION
     Dosage: 2 MG/10 ML
     Route: 042
     Dates: start: 20010910, end: 20010910
  30. NAROPIN [Suspect]
     Active Substance: ROPIVACAINE HYDROCHLORIDE
     Dosage: UNK
     Route: 042
     Dates: start: 20010910, end: 20010910
  31. NORMABRAIN [Suspect]
     Active Substance: PIRACETAM
     Indication: PRODUCT USED FOR UNKNOWN INDICATION
     Dosage: UNK
     Route: 048
     Dates: end: 20010903
  32. NACOM [Suspect]
     Active Substance: CARBIDOPA\LEVODOPA
     Indication: PARKINSON^S DISEASE
     Dosage: 50 MG, TID
     Route: 048
     Dates: start: 20010910
  33. MIDAZOLAM [Suspect]
     Active Substance: MIDAZOLAM HYDROCHLORIDE
     Dosage: UNK
     Route: 042
     Dates: start: 20010910, end: 20010910
  34. SUPRATONIN [Suspect]
     Active Substance: AMEZINIUM METILSULFATE
     Indication: PRODUCT USED FOR UNKNOWN INDICATION
     Dosage: 2.5 MG, QD
     Route: 042
     Dates: start: 20010910, end: 20010910
  35. RYTMONORM [Suspect]
     Active Substance: PROPAFENONE
     Dosage: 150 MG, BID
     Route: 048
     Dates: start: 20010910
  36. RINGERS SOLUTION [Concomitant]
     Active Substance: CALCIUM CHLORIDE\POTASSIUM CHLORIDE\SODIUM CHLORIDE
     Dosage: UNK
     Route: 042
     Dates: start: 20010910, end: 20010910
  37. GELAFUNDIN ^BRAUN^ [Concomitant]
     Active Substance: CALCIUM CHLORIDE\GELATIN\SODIUM CHLORIDE
     Indication: PRODUCT USED FOR UNKNOWN INDICATION
     Dosage: UNK
     Route: 042
     Dates: start: 20010910, end: 20010910
  38. CISATRACURIUM BESYLATE. [Suspect]
     Active Substance: CISATRACURIUM BESYLATE
     Dosage: UNK
     Route: 042
     Dates: start: 20010910, end: 20010910
  39. ISICOM ^DESITIN^ [Suspect]
     Active Substance: CARBIDOPA\LEVODOPA
     Indication: PARKINSON^S DISEASE
     Dosage: UNK
     Route: 048
     Dates: end: 20010903
  40. SUFENTA [Suspect]
     Active Substance: SUFENTANIL CITRATE
     Indication: PRODUCT USED FOR UNKNOWN INDICATION
     Dosage: UNK
     Route: 042
     Dates: start: 20010910, end: 20010910
  41. SPIZEF (CEFOTIAM HYDROCHLORIDE) [Suspect]
     Active Substance: CEFOTIAM HYDROCHLORIDE
     Indication: PRODUCT USED FOR UNKNOWN INDICATION
     Dosage: 2 G, TID
     Route: 042
     Dates: start: 20010911

REACTIONS (7)
  - Stevens-Johnson syndrome [Recovering/Resolving]
  - Blister [Recovering/Resolving]
  - Toxic epidermal necrolysis [Recovered/Resolved with Sequelae]
  - Pyrexia [Unknown]
  - Erythema [Recovering/Resolving]
  - Petechiae [Recovering/Resolving]
  - Rash macular [Recovering/Resolving]

NARRATIVE: CASE EVENT DATE: 20010911
